FAERS Safety Report 17928290 (Version 1)
Quarter: 2020Q2

REPORT INFORMATION
  Report Type: Spontaneous
  Country: US (occurrence: US)
  Receive Date: 20200622
  Receipt Date: 20200622
  Transmission Date: 20200714
  Serious: Yes (Other)
  Sender: FDA-Public Use
  Company Number: None

PATIENT
  Age: 64 Year
  Sex: Male
  Weight: 83.7 kg

DRUGS (13)
  1. AMIODARONE [Concomitant]
     Active Substance: AMIODARONE
     Dates: start: 20200603, end: 20200618
  2. PIPERACILLIN/TAZOBACTAM [Concomitant]
     Active Substance: PIPERACILLIN SODIUM\TAZOBACTAM SODIUM
     Dates: start: 20200606, end: 20200618
  3. CISATRICURIUM [Concomitant]
     Dates: start: 20200614, end: 20200619
  4. VANCOMYCIN [Concomitant]
     Active Substance: VANCOMYCIN
     Dates: start: 20200616, end: 20200618
  5. APIXIBAN [Concomitant]
     Active Substance: APIXABAN
     Dates: start: 20200606, end: 20200614
  6. FENTANYL. [Concomitant]
     Active Substance: FENTANYL
     Dates: start: 20200614, end: 20200619
  7. PHENYLEPHRINE [Concomitant]
     Active Substance: PHENYLEPHRINE HYDROCHLORIDE
     Dates: start: 20200614, end: 20200618
  8. REMDESIVIR. [Suspect]
     Active Substance: REMDESIVIR
     Indication: COVID-19
     Route: 042
     Dates: start: 20200610, end: 20200614
  9. VASOPRESSIN. [Concomitant]
     Active Substance: VASOPRESSIN
     Dates: start: 20200617, end: 20200619
  10. FUORSEMIDE [Concomitant]
     Dates: start: 20200608, end: 20200612
  11. PROPOFOL. [Concomitant]
     Active Substance: PROPOFOL
     Dates: start: 20200612, end: 20200614
  12. MIDAZOLAM. [Concomitant]
     Active Substance: MIDAZOLAM
     Dates: start: 20200614, end: 20200619
  13. DEXAMETHASONE. [Concomitant]
     Active Substance: DEXAMETHASONE
     Dates: start: 20200617, end: 20200618

REACTIONS (6)
  - Blood creatinine increased [None]
  - Pulmonary function test decreased [None]
  - Aspartate aminotransferase increased [None]
  - Alanine aminotransferase increased [None]
  - Glomerular filtration rate decreased [None]
  - Shock [None]

NARRATIVE: CASE EVENT DATE: 20200617
